FAERS Safety Report 7866990-X (Version None)
Quarter: 2011Q4

REPORT INFORMATION
  Report Type: 
  Country: None (occurrence: None)
  Receive Date: 20111028
  Receipt Date: 20111026
  Transmission Date: 20120403
  Serious: Yes (Death)
  Sender: FDA-Public Use
  Company Number: US-ACTELION-A-NJ2011-55274

PATIENT

DRUGS (2)
  1. VENTAVIS [Suspect]
     Indication: PULMONARY VENO-OCCLUSIVE DISEASE
     Dosage: 5 UG, UNK
     Route: 055
     Dates: start: 20110509, end: 20110813
  2. REMODULIN [Concomitant]

REACTIONS (1)
  - DEATH [None]
